FAERS Safety Report 9296599 (Version 4)
Quarter: 2014Q2

REPORT INFORMATION
  Report Type: Spontaneous
  Country: US (occurrence: US)
  Receive Date: 20130517
  Receipt Date: 20140507
  Transmission Date: 20141212
  Serious: Yes (Hospitalization, Other)
  Sender: FDA-Public Use
  Company Number: US-009507513-1305USA009315

PATIENT
  Sex: Male
  Weight: 110.2 kg

DRUGS (6)
  1. PROPECIA [Suspect]
     Indication: BENIGN PROSTATIC HYPERPLASIA
     Dosage: 5 MG, UNK
     Dates: start: 20100526, end: 20120428
  2. PROSCAR [Suspect]
     Indication: BENIGN PROSTATIC HYPERPLASIA
     Dosage: 5 MG, UNK
     Route: 048
     Dates: end: 20120428
  3. FINASTERIDE [Suspect]
     Indication: BENIGN PROSTATIC HYPERPLASIA
     Dosage: 5 MG, UNK
     Route: 048
     Dates: start: 2007, end: 20120428
  4. FLOMAX (TAMSULOSIN HYDROCHLORIDE) [Concomitant]
     Indication: BENIGN PROSTATIC HYPERPLASIA
     Dosage: UNK MG, UNK
  5. TAMSULOSIN HYDROCHLORIDE [Concomitant]
     Indication: BENIGN PROSTATIC HYPERPLASIA
     Dosage: 0.4 MG, UNK
  6. FINASTERIDE [Suspect]
     Indication: BENIGN PROSTATIC HYPERPLASIA
     Dosage: 5 MG, QD
     Route: 048
     Dates: start: 20120527

REACTIONS (48)
  - Benign prostatic hyperplasia [Unknown]
  - Transurethral prostatectomy [Unknown]
  - Spinal fusion surgery [Unknown]
  - Pulmonary embolism [Unknown]
  - Post procedural inflammation [Unknown]
  - Syncope [Unknown]
  - Fall [Unknown]
  - Hyperlipidaemia [Unknown]
  - Transaminases increased [Unknown]
  - Malaise [Unknown]
  - Exercise tolerance decreased [Unknown]
  - Fatigue [Unknown]
  - Skin papilloma [Unknown]
  - Melanocytic naevus [Unknown]
  - Varicose vein [Unknown]
  - Lacrimation increased [Unknown]
  - Muscle spasms [Unknown]
  - Pain [Unknown]
  - Bladder disorder [Unknown]
  - Bladder neck operation [Unknown]
  - Essential hypertension [Unknown]
  - Pain in extremity [Unknown]
  - Upper extremity mass [Unknown]
  - Dysuria [Unknown]
  - Haematuria [Unknown]
  - Laboratory test abnormal [Unknown]
  - Vertigo [Unknown]
  - Vitamin D deficiency [Unknown]
  - Umbilical hernia [Unknown]
  - Lactose intolerance [Unknown]
  - Hepatic steatosis [Unknown]
  - Inner ear disorder [Unknown]
  - Headache [Unknown]
  - Prostatic obstruction [Unknown]
  - Ureteric stenosis [Unknown]
  - Muscular dystrophy [Unknown]
  - Drug administration error [Unknown]
  - Orthostatic hypotension [Unknown]
  - Erectile dysfunction [Not Recovered/Not Resolved]
  - Depression [Not Recovered/Not Resolved]
  - Sexual dysfunction [Not Recovered/Not Resolved]
  - Drug ineffective [Unknown]
  - Drug ineffective [Unknown]
  - Drug ineffective [Unknown]
  - Drug ineffective [Unknown]
  - Coronary artery disease [Unknown]
  - Abdominal pain upper [Unknown]
  - Splenomegaly [Unknown]
